FAERS Safety Report 5763406-4 (Version None)
Quarter: 2008Q2

REPORT INFORMATION
  Report Type: 
  Country: None (occurrence: None)
  Receive Date: 20080604
  Receipt Date: 20080604
  Transmission Date: 20081010
  Serious: Yes (Death, Life-Threatening, Hospitalization, Other)
  Sender: FDA-Public Use
  Company Number: None

PATIENT
  Age: 74 Year
  Sex: Male
  Weight: 65.318 kg

DRUGS (2)
  1. RISPERDAL CONSTA [Suspect]
     Indication: AGITATION
     Dosage: INJECTION ONCE
     Dates: start: 20080421, end: 20080421
  2. RISPERDAL [Suspect]
     Dates: start: 20080421, end: 20080504

REACTIONS (8)
  - BLOOD GLUCOSE INCREASED [None]
  - CEREBROVASCULAR ACCIDENT [None]
  - DEHYDRATION [None]
  - DIABETES MELLITUS [None]
  - MOVEMENT DISORDER [None]
  - MUSCLE RIGIDITY [None]
  - PARKINSON'S DISEASE [None]
  - UNRESPONSIVE TO STIMULI [None]
